FAERS Safety Report 7122284-1 (Version None)
Quarter: 2010Q4

REPORT INFORMATION
  Report Type: 
  Country: None (occurrence: None)
  Receive Date: 20101124
  Receipt Date: 20101116
  Transmission Date: 20110411
  Serious: Yes (Hospitalization, Other)
  Sender: FDA-Public Use
  Company Number: US-CELGENEUS-163-21880-08031118

PATIENT
  Sex: Male
  Weight: 79.5 kg

DRUGS (25)
  1. REVLIMID [Suspect]
     Route: 048
     Dates: start: 20080225, end: 20080324
  2. REVLIMID [Suspect]
     Route: 048
     Dates: start: 20080324, end: 20080301
  3. RITUXIMAB [Suspect]
     Route: 051
     Dates: start: 20080225, end: 20080314
  4. RITUXIMAB [Suspect]
     Dosage: 375 MG/M2
     Route: 051
     Dates: start: 20080324, end: 20080301
  5. FLUDARABINE [Suspect]
     Route: 051
     Dates: start: 20080225, end: 20080314
  6. FLUDARABINE [Suspect]
     Dosage: 25MG/M2
     Route: 065
     Dates: start: 20080324, end: 20080301
  7. SIMVASTATIN [Suspect]
     Route: 048
     Dates: start: 20070724, end: 20080301
  8. LISINOPRIL [Concomitant]
     Indication: HYPERTENSION
     Route: 048
     Dates: start: 20060301, end: 20080314
  9. ACYCLOVIR [Concomitant]
     Indication: INFECTION PROPHYLAXIS
     Route: 048
     Dates: start: 20080215
  10. ATIVAN [Concomitant]
     Indication: ANXIETY
     Route: 048
     Dates: start: 20080225
  11. COMPAZINE [Concomitant]
     Indication: NAUSEA
     Route: 048
     Dates: start: 20080225
  12. DOXEPIN HCL [Concomitant]
     Route: 061
     Dates: start: 20080307
  13. DOXEPIN HCL [Concomitant]
     Indication: URTICARIA
  14. EFFEXOR XR [Concomitant]
     Route: 048
     Dates: start: 20071022
  15. HYDROXYZINE HCL [Concomitant]
     Route: 048
     Dates: start: 20080313
  16. HYDROXYZINE HCL [Concomitant]
     Indication: RASH
  17. LAC-HYDRIN [Concomitant]
     Indication: DERMATITIS
     Route: 061
     Dates: start: 20071006
  18. MEPRON [Concomitant]
     Indication: INFECTION PROPHYLAXIS
     Dosage: 5 ML
     Route: 048
     Dates: start: 20080307
  19. PRILOSEC [Concomitant]
     Route: 048
     Dates: start: 20051031
  20. RETINOIC ACID [Concomitant]
     Indication: ACNE
     Route: 061
     Dates: start: 20070529
  21. TRIAMCINOLONE [Concomitant]
     Route: 061
     Dates: start: 20080307
  22. WELLBUTRIN SR [Concomitant]
     Indication: DEPRESSION
     Route: 061
     Dates: start: 20060518
  23. TRAZODONE [Concomitant]
     Indication: DEPRESSION
     Route: 048
     Dates: start: 20050428
  24. FUROSEMIDE [Concomitant]
     Indication: RHABDOMYOLYSIS
     Route: 051
     Dates: start: 20080328, end: 20080328
  25. BETAMETHASONE DIPROPIONATE [Concomitant]
     Indication: RASH
     Route: 061
     Dates: start: 20080307

REACTIONS (2)
  - INFLUENZA [None]
  - RHABDOMYOLYSIS [None]
